FAERS Safety Report 21684375 (Version 1)
Quarter: 2022Q4

REPORT INFORMATION
  Report Type: Spontaneous
  Country: US (occurrence: None)
  Receive Date: 20221202
  Receipt Date: 20221202
  Transmission Date: 20230112
  Serious: Yes (Death)
  Sender: FDA-Public Use
  Company Number: None

PATIENT
  Age: 70 Year
  Sex: Male

DRUGS (1)
  1. TADALAFIL [Suspect]
     Active Substance: TADALAFIL
     Indication: Pulmonary hypertension
     Dosage: FREQUENCY : DAILY;?
     Route: 048
     Dates: start: 20211103, end: 20221125

REACTIONS (8)
  - Mental status changes [None]
  - Troponin increased [None]
  - Hypervolaemia [None]
  - Hepatic enzyme increased [None]
  - Cardiac failure [None]
  - Hospice care [None]
  - Congestive hepatopathy [None]
  - Myocardial ischaemia [None]
